FAERS Safety Report 6353306-3 (Version None)
Quarter: 2009Q3

REPORT INFORMATION
  Report Type: 
  Country: None (occurrence: None)
  Receive Date: 20090912
  Receipt Date: 20090622
  Transmission Date: 20100115
  Serious: No
  Sender: FDA-Public Use
  Company Number: US-ABBOTT-08P-163-0456302-00

PATIENT
  Sex: Female
  Weight: 86.714 kg

DRUGS (9)
  1. HUMIRA [Suspect]
     Indication: POLYCHONDRITIS
     Route: 058
     Dates: start: 20080101
  2. METHOTREXATE [Concomitant]
     Indication: POLYCHONDRITIS
     Route: 048
  3. ALENDRONATE SODIUM [Concomitant]
     Indication: BONE DISORDER
     Route: 048
  4. PREDNISONE [Concomitant]
     Indication: POLYCHONDRITIS
     Route: 048
     Dates: end: 20080501
  5. FOLIC ACID [Concomitant]
     Indication: VITAMIN SUPPLEMENTATION
     Route: 048
  6. ISONIAZID [Concomitant]
     Indication: PROPHYLAXIS
     Route: 048
  7. VITAMIN B COMPLEX CAP [Concomitant]
     Indication: VITAMIN SUPPLEMENTATION
     Route: 048
  8. INEGY [Concomitant]
     Indication: BLOOD CHOLESTEROL
     Route: 048
  9. OMEPRAZOLE [Concomitant]
     Indication: GASTRIC DISORDER
     Route: 048

REACTIONS (4)
  - DRUG DELIVERY SYSTEM MALFUNCTION [None]
  - INCORRECT DOSE ADMINISTERED [None]
  - INJECTION SITE HAEMATOMA [None]
  - INJECTION SITE PAIN [None]
